FAERS Safety Report 6828214-1 (Version None)
Quarter: 2010Q3

REPORT INFORMATION
  Report Type: 
  Country: None (occurrence: None)
  Receive Date: 20100709
  Receipt Date: 20070202
  Transmission Date: 20110219
  Serious: No
  Sender: FDA-Public Use
  Company Number: US-PFIZER INC-2007009878

PATIENT
  Age: 53 Year
  Sex: Female
  Weight: 71.67 kg

DRUGS (3)
  1. CHANTIX [Suspect]
     Indication: SMOKING CESSATION THERAPY
     Dates: start: 20070129, end: 20070201
  2. CALAN [Concomitant]
     Indication: CARDIAC DISORDER
  3. CARDIAC THERAPY [Concomitant]

REACTIONS (7)
  - ASTHENIA [None]
  - FEELING JITTERY [None]
  - INSOMNIA [None]
  - NAUSEA [None]
  - NERVOUSNESS [None]
  - TREMOR [None]
  - VOMITING [None]
